FAERS Safety Report 5143138-6 (Version None)
Quarter: 2006Q4

REPORT INFORMATION
  Report Type: 
  Country: None (occurrence: None)
  Receive Date: 20061031
  Receipt Date: 20061031
  Transmission Date: 20070319
  Serious: Yes (Hospitalization)
  Sender: FDA-Public Use
  Company Number: None

PATIENT
  Sex: Female
  Weight: 85.1 kg

DRUGS (6)
  1. CYTARABINE [Suspect]
     Dosage: 70 MG    INTRATHECAL
     Route: 037
  2. DAUNORUBICIN HCL [Suspect]
     Dosage: 96 MG
  3. DEXAMETHASONE TAB [Suspect]
     Dosage: 266 MG
  4. METHOTREXATE [Suspect]
     Dosage: 15 MG   INTRATHECAL
     Route: 037
  5. PEG-L-ASPARAGINASE (K-H) [Suspect]
     Dosage: 4825 UNIT
  6. VINCRISTINE SULFATE [Suspect]
     Dosage: 6 MG

REACTIONS (5)
  - CATHETER RELATED INFECTION [None]
  - DEHYDRATION [None]
  - ESCHERICHIA INFECTION [None]
  - HYPONATRAEMIA [None]
  - SEPTIC SHOCK [None]
